FAERS Safety Report 16252616 (Version 3)
Quarter: 2021Q1

REPORT INFORMATION
  Report Type: Spontaneous
  Country: US (occurrence: US)
  Receive Date: 20190429
  Receipt Date: 20210315
  Transmission Date: 20210419
  Serious: Yes (Other)
  Sender: FDA-Public Use
  Company Number: US-PFIZER INC-2019175831

PATIENT
  Age: 9 Year
  Sex: Female

DRUGS (3)
  1. GENOTROPIN MQ [Suspect]
     Active Substance: SOMATROPIN
     Dosage: 0.6MG AND 0.8MG/DAY, 7DAYS/WK, ALTERNATE DAY
  2. GENOTROPIN MQ [Suspect]
     Active Substance: SOMATROPIN
     Indication: PRADER-WILLI SYNDROME
     Dosage: 0.8 MG, 1X/DAY (0.8 MG NIGHTLY)
  3. GENOTROPIN MQ [Suspect]
     Active Substance: SOMATROPIN
     Dosage: 0.6MG AND 0.8MG/DAY, 7DAYS/WK, ALTERNATE DAY

REACTIONS (3)
  - Sleep disorder [Unknown]
  - Growth hormone deficiency [Unknown]
  - Anxiety [Unknown]
